FAERS Safety Report 8921394 (Version 2)
Quarter: 2013Q1

REPORT INFORMATION
  Report Type: Spontaneous
  Country: US (occurrence: US)
  Receive Date: 20121122
  Receipt Date: 20130103
  Transmission Date: 20140127
  Serious: Yes (Other)
  Sender: FDA-Public Use
  Company Number: PHEH2012US022622

PATIENT
  Sex: Female

DRUGS (4)
  1. VIVELLE DOT [Suspect]
     Indication: HYSTERECTOMY
     Dosage: 01 UKN, TWICE WEEKLY
     Route: 062
  2. AMBIEN [Concomitant]
  3. VRIENDEN [Concomitant]
  4. SYNTHROID [Concomitant]

REACTIONS (4)
  - Clavicle fracture [Unknown]
  - Mood swings [Unknown]
  - Pruritus [Unknown]
  - Hot flush [Unknown]
